FAERS Safety Report 9625087 (Version 2)
Quarter: 2013Q4

REPORT INFORMATION
  Report Type: Report from Study
  Country: US (occurrence: US)
  Receive Date: 20131016
  Receipt Date: 20131025
  Transmission Date: 20140711
  Serious: Yes (Death, Life-Threatening, Hospitalization, Disabling)
  Sender: FDA-Public Use
  Company Number: US-CELGENEUS-163-21880-13101443

PATIENT
  Age: 55 Year
  Sex: Female

DRUGS (8)
  1. REVLIMID [Suspect]
     Indication: PLASMA CELL MYELOMA
     Dosage: 25 - 10 - 25MG
     Route: 048
     Dates: start: 20130118
  2. VELCADE [Suspect]
     Indication: PLASMA CELL MYELOMA
     Route: 041
     Dates: start: 20130819, end: 20130909
  3. DOXORUBICIN [Suspect]
     Indication: PLASMA CELL MYELOMA
     Route: 041
     Dates: start: 20130909, end: 20130909
  4. PROMETHAZINE [Concomitant]
     Indication: PRODUCT USED FOR UNKNOWN INDICATION
     Route: 041
  5. DEXTROSE AND SODIUM CHLORIDE [Concomitant]
     Indication: PRODUCT USED FOR UNKNOWN INDICATION
     Dosage: 5%- 1/4 N/S
     Route: 041
     Dates: start: 20130926
  6. SODIUM CHLORIDE [Concomitant]
     Indication: PRODUCT USED FOR UNKNOWN INDICATION
     Route: 041
     Dates: start: 20130922, end: 20130923
  7. SODIUM CHLORIDE [Concomitant]
     Route: 041
     Dates: start: 20130919
  8. DEXTROSE IN WATER [Concomitant]
     Indication: PRODUCT USED FOR UNKNOWN INDICATION
     Dosage: 5%-WATER
     Route: 041
     Dates: start: 20130923, end: 20130924

REACTIONS (10)
  - Plasma cell myeloma [Fatal]
  - Malnutrition [Not Recovered/Not Resolved]
  - Haemorrhage [Recovered/Resolved]
  - Coagulopathy [Not Recovered/Not Resolved]
  - Thrombocytopenia [Not Recovered/Not Resolved]
  - Pancytopenia [Not Recovered/Not Resolved]
  - Dehydration [Recovered/Resolved]
  - Nausea [Recovered/Resolved]
  - Vomiting [Recovered/Resolved]
  - Hypercalcaemia [Recovered/Resolved]
